FAERS Safety Report 8214983-5 (Version None)
Quarter: 2012Q1

REPORT INFORMATION
  Report Type: 
  Country: None (occurrence: None)
  Receive Date: 20120316
  Receipt Date: 20120309
  Transmission Date: 20120608
  Serious: Yes (Other)
  Sender: FDA-Public Use
  Company Number: US-UCBSA-053130

PATIENT
  Age: 31 Year

DRUGS (1)
  1. CIMZIA [Suspect]
     Indication: CROHN'S DISEASE
     Dosage: UNKNOWN DOSE
     Route: 058
     Dates: start: 20110901

REACTIONS (2)
  - SEPSIS [None]
  - VIRAL INFECTION [None]
